FAERS Safety Report 6833961-1 (Version None)
Quarter: 2010Q3

REPORT INFORMATION
  Report Type: 
  Country: None (occurrence: None)
  Receive Date: 20100712
  Receipt Date: 20070615
  Transmission Date: 20110219
  Serious: No
  Sender: FDA-Public Use
  Company Number: US-PFIZER INC-2007028538

PATIENT
  Sex: Female
  Weight: 58.97 kg

DRUGS (3)
  1. CHANTIX [Suspect]
     Indication: SMOKING CESSATION THERAPY
     Dates: start: 20070324, end: 20070331
  2. NORVASC [Concomitant]
     Indication: HYPERTENSION
  3. DIURETICS [Concomitant]
     Indication: HYPERTENSION

REACTIONS (9)
  - ABNORMAL DREAMS [None]
  - DECREASED APPETITE [None]
  - DYSPEPSIA [None]
  - FATIGUE [None]
  - INSOMNIA [None]
  - NAUSEA [None]
  - NIGHT SWEATS [None]
  - VISION BLURRED [None]
  - VITREOUS FLOATERS [None]
